FAERS Safety Report 7583160-3 (Version None)
Quarter: 2011Q2

REPORT INFORMATION
  Report Type: 
  Country: None (occurrence: None)
  Receive Date: 20110630
  Receipt Date: 20110617
  Transmission Date: 20111010
  Serious: Yes (Death)
  Sender: FDA-Public Use
  Company Number: MU-RANBAXY-2011R5-45558

PATIENT

DRUGS (1)
  1. RANITIDINE [Suspect]
     Indication: ABDOMINAL PAIN UPPER
     Dosage: UNK
     Route: 065

REACTIONS (1)
  - ACUTE MYOCARDIAL INFARCTION [None]
